APPROVED DRUG PRODUCT: ESZOPICLONE
Active Ingredient: ESZOPICLONE
Strength: 2MG
Dosage Form/Route: TABLET;ORAL
Application: A091153 | Product #002
Applicant: HIKMA PHARMACEUTICALS USA INC
Approved: Apr 15, 2014 | RLD: No | RS: No | Type: DISCN